FAERS Safety Report 6827261-3 (Version None)
Quarter: 2010Q3

REPORT INFORMATION
  Report Type: 
  Country: None (occurrence: None)
  Receive Date: 20100709
  Receipt Date: 20100706
  Transmission Date: 20110219
  Serious: Yes (Death)
  Sender: FDA-Public Use
  Company Number: DE-JNJFOC-20100602620

PATIENT
  Sex: Female

DRUGS (18)
  1. LOPERAMIDE [Suspect]
     Indication: GASTROENTERITIS
     Route: 048
  2. SOMAC [Suspect]
     Indication: PEPTIC ULCER
     Route: 048
  3. SOMAC [Suspect]
     Route: 048
  4. CIPROFLOXACIN HCL [Suspect]
     Indication: CHOLANGITIS
     Route: 048
  5. CIPROFLOXACIN HCL [Suspect]
     Indication: PRODUCT USED FOR UNKNOWN INDICATION
     Route: 042
  6. METRONIDAZOLE [Suspect]
     Indication: CHOLANGITIS
     Route: 042
  7. ANTRA [Suspect]
     Indication: PEPTIC ULCER
     Route: 042
  8. ANTRA [Suspect]
     Route: 042
  9. HEPARIN [Suspect]
     Indication: THROMBOSIS PROPHYLAXIS
     Route: 058
  10. BAYPEN [Suspect]
     Indication: CHOLANGITIS
     Route: 042
  11. PENTAZOCINE [Suspect]
     Indication: PAIN
     Route: 042
  12. DIMENHYDRINATE [Suspect]
     Indication: VOMITING
     Route: 042
  13. ETILEFRINE HYDROCHLORIDE [Suspect]
     Indication: HYPOTENSION
     Dosage: 30 DROPS
     Route: 048
  14. METOCLOPRAMIDE HYDROCHLORIDE [Suspect]
     Indication: VOMITING
     Dosage: 1 AMPULE
     Route: 065
  15. CHOLSPASMIN [Suspect]
     Indication: CHOLELITHIASIS
     Route: 042
  16. FENISTIL [Suspect]
     Indication: PRURITUS
     Dosage: 1 PIECE
     Route: 048
  17. FENISTIL [Suspect]
     Dosage: 1 AMPULE
     Route: 042
  18. SOLU-DACORTIN [Suspect]
     Indication: PRURITUS
     Route: 042

REACTIONS (3)
  - CIRCULATORY COLLAPSE [None]
  - STEVENS-JOHNSON SYNDROME [None]
  - TOXIC EPIDERMAL NECROLYSIS [None]
